FAERS Safety Report 16291992 (Version 1)
Quarter: 2019Q2

REPORT INFORMATION
  Report Type: Spontaneous
  Country: BR (occurrence: BR)
  Receive Date: 20190509
  Receipt Date: 20190509
  Transmission Date: 20190711
  Serious: Yes (Other)
  Sender: FDA-Public Use
  Company Number: BR-GUERBET-BR-20190161

PATIENT
  Age: 46 Year
  Sex: Male
  Weight: 91 kg

DRUGS (1)
  1. DOTAREM [Suspect]
     Active Substance: GADOTERATE MEGLUMINE
     Indication: PRODUCT USED FOR UNKNOWN INDICATION
     Route: 042
     Dates: start: 20190401, end: 20190401

REACTIONS (2)
  - Pruritus [Recovered/Resolved]
  - Skin plaque [Recovered/Resolved]

NARRATIVE: CASE EVENT DATE: 20190401
